FAERS Safety Report 16437469 (Version 1)
Quarter: 2019Q2

REPORT INFORMATION
  Report Type: Spontaneous
  Country: FR (occurrence: FR)
  Receive Date: 20190615
  Receipt Date: 20190615
  Transmission Date: 20190711
  Serious: Yes (Other)
  Sender: FDA-Public Use
  Company Number: FR-AUROBINDO-AUR-APL-2019-034537

PATIENT

DRUGS (10)
  1. HEPARIN SODIUM. [Suspect]
     Active Substance: HEPARIN SODIUM
     Indication: COAGULOPATHY
     Dosage: UNK
     Route: 064
  2. FOLIC ACID. [Suspect]
     Active Substance: FOLIC ACID
     Indication: PRODUCT USED FOR UNKNOWN INDICATION
     Dosage: UNK
     Route: 064
  3. AMOXICILLIN. [Suspect]
     Active Substance: AMOXICILLIN
     Indication: ANTIBIOTIC THERAPY
     Dosage: UNK
     Route: 064
  4. CALCIUM [Suspect]
     Active Substance: CALCIUM
     Indication: DIALYSIS
     Dosage: UNK, 1.5 MEQ/L
     Route: 064
  5. FERROUS SULFATE. [Suspect]
     Active Substance: FERROUS SULFATE
     Indication: PRODUCT USED FOR UNKNOWN INDICATION
     Dosage: 100 MILLIGRAM, (100 MG, UNK, PER WEEK)
     Route: 064
  6. GLUCOSE [Suspect]
     Active Substance: DEXTROSE
     Indication: DIALYSIS
     Dosage: UNK, 1 G/L
     Route: 064
  7. BICARBONATE [Suspect]
     Active Substance: SODIUM BICARBONATE
     Indication: DIALYSIS
     Dosage: UNK, 35 MEQ/L
     Route: 064
  8. SODIUM [Suspect]
     Active Substance: SODIUM
     Indication: DIALYSIS
     Dosage: 138 MILLIEQUIVALENT
     Route: 064
  9. ATOSIBAN [Suspect]
     Active Substance: ATOSIBAN
     Indication: TOCOLYSIS
     Dosage: UNK
     Route: 064
  10. METHOXY POLYETHYLENE GLYCOL-EPOETIN BETA. [Suspect]
     Active Substance: METHOXY POLYETHYLENE GLYCOL-EPOETIN BETA
     Indication: PRODUCT USED FOR UNKNOWN INDICATION
     Dosage: UNK
     Route: 065

REACTIONS (8)
  - Respiratory distress [Unknown]
  - Hyperbilirubinaemia [Unknown]
  - Bronchopulmonary dysplasia [Unknown]
  - Neonatal hypocalcaemia [Unknown]
  - Premature baby [Unknown]
  - Foetal exposure during pregnancy [Unknown]
  - Anaemia neonatal [Unknown]
  - Neonatal respiratory distress syndrome [Unknown]
